FAERS Safety Report 25414867 (Version 1)
Quarter: 2025Q2

REPORT INFORMATION
  Report Type: Spontaneous
  Country: US (occurrence: US)
  Receive Date: 20250609
  Receipt Date: 20250609
  Transmission Date: 20250717
  Serious: No
  Sender: GENMAB
  Company Number: US-GENMAB-2025-00053

PATIENT
  Sex: Male
  Weight: 56.689 kg

DRUGS (2)
  1. EPKINLY [Suspect]
     Active Substance: EPCORITAMAB-BYSP
     Indication: Diffuse large B-cell lymphoma
     Route: 058
     Dates: start: 20240806
  2. EPKINLY [Suspect]
     Active Substance: EPCORITAMAB-BYSP
     Route: 058
     Dates: start: 20241231

REACTIONS (2)
  - Rhinorrhoea [Recovered/Resolved]
  - Cough [Recovered/Resolved]
